FAERS Safety Report 9308140 (Version 2)
Quarter: 2013Q2

REPORT INFORMATION
  Report Type: Spontaneous
  Country: DE (occurrence: DE)
  Receive Date: 20130524
  Receipt Date: 20130528
  Transmission Date: 20140414
  Serious: Yes (Congenital Anomaly, Other)
  Sender: FDA-Public Use
  Company Number: DE-PFIZER INC-2013151601

PATIENT
  Sex: Male
  Weight: 4.12 kg

DRUGS (6)
  1. VENLAFAXINE HCL [Suspect]
     Indication: BIPOLAR DISORDER
     Dosage: 75 MG/D
     Route: 064
     Dates: start: 2009
  2. QUILONORM RETARD [Suspect]
     Indication: BIPOLAR DISORDER
     Dosage: 1125 MG/DAY
     Route: 064
     Dates: start: 2009, end: 20120506
  3. QUILONORM RETARD [Suspect]
     Dosage: INCREASED TO 1350 MG/D
     Route: 064
     Dates: start: 20120507, end: 20120530
  4. QUILONORM RETARD [Suspect]
     Dosage: 1350 MG, 1X/DAY
     Route: 064
     Dates: start: 20120531
  5. SEROQUEL [Suspect]
     Indication: BIPOLAR DISORDER
     Dosage: 200 MG/D
     Route: 064
     Dates: start: 2009
  6. FOLSAEURE RATIOPHARM [Concomitant]
     Indication: PROPHYLAXIS OF NEURAL TUBE DEFECT
     Dosage: 5 MG/DAY
     Route: 064
     Dates: start: 20111102

REACTIONS (10)
  - Foetal exposure during pregnancy [Unknown]
  - Neonatal respiratory distress syndrome [Recovered/Resolved]
  - Drug withdrawal syndrome neonatal [Recovered/Resolved]
  - Congenital hydronephrosis [Unknown]
  - Persistent foetal circulation [Unknown]
  - Bundle branch block right [Unknown]
  - Large for dates baby [Unknown]
  - Pulmonary hypertension [Unknown]
  - Left ventricular hypertrophy [Unknown]
  - Urinary tract disorder [Unknown]
